FAERS Safety Report 21845483 (Version 2)
Quarter: 2023Q1

REPORT INFORMATION
  Report Type: Spontaneous
  Country: CA (occurrence: CA)
  Receive Date: 20230111
  Receipt Date: 20230126
  Transmission Date: 20230418
  Serious: Yes (Other)
  Sender: FDA-Public Use
  Company Number: CA-CELLTRION INC.-2021CA018865

PATIENT

DRUGS (26)
  1. INFLECTRA [Suspect]
     Active Substance: INFLIXIMAB-DYYB
     Indication: Eczema
     Dosage: 5 MG/KG, WEEK 0 2 6 AND THEN EVERY 8 WEEKS
     Route: 042
  2. INFLECTRA [Suspect]
     Active Substance: INFLIXIMAB-DYYB
     Indication: Arthralgia
     Dosage: 5 MG/KG, WEEK 0 2 6 AND THEN EVERY 8 WEEKS
     Route: 042
     Dates: start: 20210804, end: 20211110
  3. INFLECTRA [Suspect]
     Active Substance: INFLIXIMAB-DYYB
     Indication: Crohn^s disease
     Dosage: 5 MG/KG, WEEK 0 2 6 AND THEN EVERY 8 WEEKS
     Route: 042
     Dates: start: 20210914
  4. INFLECTRA [Suspect]
     Active Substance: INFLIXIMAB-DYYB
     Dosage: 5 MG/KG, WEEK 0 2 6 AND THEN EVERY 8 WEEKS
     Route: 042
     Dates: start: 20211110
  5. INFLECTRA [Suspect]
     Active Substance: INFLIXIMAB-DYYB
     Dosage: 5 MG/KG, WEEK 0 2 6 AND THEN EVERY 8 WEEKS
     Route: 042
     Dates: start: 20220105
  6. INFLECTRA [Suspect]
     Active Substance: INFLIXIMAB-DYYB
     Dosage: 10 MG/KG EVERY 8 WEEK
     Route: 042
     Dates: start: 20220105, end: 20220816
  7. INFLECTRA [Suspect]
     Active Substance: INFLIXIMAB-DYYB
     Dosage: 5 MG/KG,WEEK 0 2 6 AND THEN EVERY 8 WEEKS
     Route: 042
     Dates: start: 20220303
  8. INFLECTRA [Suspect]
     Active Substance: INFLIXIMAB-DYYB
     Dosage: 5 MG/KG,WEEK 0 2 6 AND THEN EVERY 8 WEEKS
     Route: 042
     Dates: start: 20220303
  9. INFLECTRA [Suspect]
     Active Substance: INFLIXIMAB-DYYB
     Dosage: 5 MG/KG,WEEK 0 2 6 AND THEN EVERY 8 WEEKS
     Route: 042
     Dates: start: 20220426
  10. INFLECTRA [Suspect]
     Active Substance: INFLIXIMAB-DYYB
     Dosage: 10 MG/KG EVERY 8 WEEKS
     Route: 042
     Dates: start: 20220621
  11. INFLECTRA [Suspect]
     Active Substance: INFLIXIMAB-DYYB
     Dosage: 10 MG/KG EVERY 8 WEEKS
     Route: 042
     Dates: start: 20220816
  12. INFLECTRA [Suspect]
     Active Substance: INFLIXIMAB-DYYB
     Dosage: 10 MG/KG EVERY 4 WEEKS
     Route: 042
     Dates: start: 20220914
  13. INFLECTRA [Suspect]
     Active Substance: INFLIXIMAB-DYYB
     Dosage: 10 MG/KG EVERY 4 WEEKS
     Route: 042
     Dates: start: 20221013
  14. INFLECTRA [Suspect]
     Active Substance: INFLIXIMAB-DYYB
     Dosage: 700 MG (SUPPOSED TO RECEIVE 10 MG/KG) EVERY 4 WEEKS
     Route: 042
     Dates: start: 20221109
  15. INFLECTRA [Suspect]
     Active Substance: INFLIXIMAB-DYYB
     Dosage: 10 MG/KG EVERY 4 WEEKS
     Route: 042
     Dates: start: 20221206
  16. INFLECTRA [Suspect]
     Active Substance: INFLIXIMAB-DYYB
     Dosage: 10 MG/KG EVERY 4 WEEKS (710 MG (10 MG/KG) Q 4 WEEKS)
     Route: 042
     Dates: start: 20230117
  17. ADVAIR HFA [Concomitant]
     Active Substance: FLUTICASONE PROPIONATE\SALMETEROL XINAFOATE
     Dosage: UNK
  18. ADVAIR HFA [Concomitant]
     Active Substance: FLUTICASONE PROPIONATE\SALMETEROL XINAFOATE
     Dosage: 1 DF DOSAGE INFORMATION NOT AVAILABLE
     Route: 065
  19. CELLCEPT [Concomitant]
     Active Substance: MYCOPHENOLATE MOFETIL
     Dosage: UNK
  20. IRON [Concomitant]
     Active Substance: IRON
     Indication: Anaemia
     Dosage: UNK UNK, DAILY
     Route: 048
  21. IRON [Concomitant]
     Active Substance: IRON
     Dosage: 1 DF,DIE
     Route: 048
  22. IRON [Concomitant]
     Active Substance: IRON
     Dosage: 1 DF, 1X/DAY
     Route: 048
  23. PREDNISONE [Concomitant]
     Active Substance: PREDNISONE
     Dosage: UNK
  24. VENTOLIN [Concomitant]
     Active Substance: ALBUTEROL SULFATE
     Indication: Asthma
     Dosage: UNK, AS NEEDED
  25. VENTOLIN [Concomitant]
     Active Substance: ALBUTEROL SULFATE
     Dosage: 1 DF, AS NEEDED
     Route: 065
  26. VITAMIN D NOS [Concomitant]
     Active Substance: VITAMIN D NOS
     Dosage: 1 DF, DOSAGE INFORMATION NOT AVAILABLE
     Route: 065

REACTIONS (12)
  - Respiratory tract infection [Recovered/Resolved]
  - Drug level decreased [Unknown]
  - Off label use [Unknown]
  - Off label use [Unknown]
  - Intentional product use issue [Unknown]
  - Weight increased [Unknown]
  - Skin burning sensation [Unknown]
  - Condition aggravated [Recovering/Resolving]
  - Skin disorder [Unknown]
  - Pruritus [Not Recovered/Not Resolved]
  - Rash [Not Recovered/Not Resolved]
  - Fistula [Not Recovered/Not Resolved]

NARRATIVE: CASE EVENT DATE: 20211110
